FAERS Safety Report 23690003 (Version 4)
Quarter: 2024Q2

REPORT INFORMATION
  Report Type: Report from Study
  Country: US (occurrence: US)
  Receive Date: 20240401
  Receipt Date: 20240520
  Transmission Date: 20240715
  Serious: Yes (Other)
  Sender: FDA-Public Use
  Company Number: US-ABBVIE-5697454

PATIENT
  Age: 76 Year
  Sex: Male
  Weight: 66.08 kg

DRUGS (16)
  1. DUOPA [Suspect]
     Active Substance: CARBIDOPA\LEVODOPA
     Indication: Parkinson^s disease
     Route: 050
     Dates: start: 20160719
  2. DUOPA [Suspect]
     Active Substance: CARBIDOPA\LEVODOPA
     Dosage: 4.63-20 MG/ML
     Route: 050
     Dates: start: 202404
  3. DUOPA [Suspect]
     Active Substance: CARBIDOPA\LEVODOPA
     Dosage: FORM STRENGTH: 4.63-20 MG/ML, CONTINUOUS INFUSION. GIVE 1 DEVICE VIA J-TUBE EVERY SHIFT FOR PARKI...
     Route: 050
     Dates: start: 20230810, end: 20230810
  4. CARBIDOPA\LEVODOPA [Concomitant]
     Active Substance: CARBIDOPA\LEVODOPA
     Indication: Parkinson^s disease
     Dosage: FORM STRENGTH: 25-100 MG, AS NEEDED FOR ONLY WHEN PUMP NOT AVAILABLE
     Route: 048
     Dates: start: 20230606, end: 20230606
  5. CARBIDOPA\LEVODOPA [Concomitant]
     Active Substance: CARBIDOPA\LEVODOPA
     Indication: Parkinson^s disease
     Dosage: FORM STRENGTH: 25-100 MG, AS NEEDED
     Route: 048
     Dates: start: 20230905, end: 20230905
  6. ROBITUSSIN DM [Concomitant]
     Active Substance: DEXTROMETHORPHAN HYDROBROMIDE\GUAIFENESIN
     Indication: Cough
     Dosage: FORM STRENGTH: 100-10 MG/5ML, 15 CUBIC CENTIMETRE, AS NEEDED
     Route: 048
     Dates: start: 20231208, end: 20231208
  7. PREGABALIN [Concomitant]
     Active Substance: PREGABALIN
     Indication: Neuropathy peripheral
     Dosage: FORM STRENGTH: 100 MG, FOR 6 MONTHS
     Route: 048
     Dates: start: 20231229
  8. INSULIN ASPART [Concomitant]
     Active Substance: INSULIN ASPART
     Indication: Diabetes mellitus
     Dosage: TIME INTERVAL: AS NECESSARY: INJECT AS PER SLIDING SCALE: IF 201 - 250 = 2 UNITS; 251 - 300 = 4 U...
     Route: 058
     Dates: start: 20240109, end: 20240109
  9. MELATONIN [Concomitant]
     Active Substance: MELATONIN
     Indication: Insomnia
     Dosage: AT BEDTIME
     Route: 048
     Dates: start: 20240112, end: 20240112
  10. CYANOCOBALAMIN [Concomitant]
     Active Substance: CYANOCOBALAMIN
     Indication: Vitamin B12 deficiency
     Route: 048
     Dates: start: 20230516, end: 20230517
  11. METFORMIN HYDROCHLORIDE [Concomitant]
     Active Substance: METFORMIN HYDROCHLORIDE
     Indication: Diabetes mellitus
     Route: 048
     Dates: start: 20240109, end: 20240124
  12. TUBERCULIN PURIFIED PROTEIN DERIVATIVE [Concomitant]
     Active Substance: TUBERCULIN PURIFIED PROTEIN DERIVATIVE
     Indication: Mycobacterium tuberculosis complex test
     Dosage: ONE TIME A DAY, STARTING ON THE 12TH FOR 1 DAY(S) FOR TB SCREENING FIRST STEP
     Route: 023
     Dates: start: 20230612, end: 20230612
  13. TYLENOL [Concomitant]
     Active Substance: ACETAMINOPHEN
     Indication: Pain
     Dosage: FORM STRENGTH: 325 MG, AS NEEDED.
     Route: 048
     Dates: start: 20230606, end: 20230710
  14. ICY HOT PRO NO-MESS [Concomitant]
     Active Substance: CAMPHOR (SYNTHETIC)\MENTHOL
     Indication: Pain
     Dosage: FORM STRENGTH: 16-11 PERCENTAGE, AS NEEDED
     Route: 061
     Dates: start: 20230613, end: 20230613
  15. CYCLOBENZAPRINE HYDROCHLORIDE [Concomitant]
     Active Substance: CYCLOBENZAPRINE HYDROCHLORIDE
     Indication: Muscle spasms
     Dosage: AS NEEDED
     Route: 048
     Dates: start: 20230725, end: 20230725
  16. MILK OF MAGNESIA [Concomitant]
     Active Substance: MAGNESIUM HYDROXIDE
     Indication: Constipation
     Dosage: FORM STRENGTH: 400 MG/5 ML, AS NEEDED
     Route: 048
     Dates: start: 20231016, end: 20231016

REACTIONS (5)
  - Living in residential institution [Recovered/Resolved]
  - Fall [Recovered/Resolved]
  - Device expulsion [Unknown]
  - Unintentional medical device removal [Recovered/Resolved]
  - Device occlusion [Recovered/Resolved]

NARRATIVE: CASE EVENT DATE: 20230901
